FAERS Safety Report 7864327-3 (Version None)
Quarter: 2011Q4

REPORT INFORMATION
  Report Type: 
  Country: None (occurrence: None)
  Receive Date: 20111028
  Receipt Date: 20111025
  Transmission Date: 20120403
  Serious: Yes (Death, Other)
  Sender: FDA-Public Use
  Company Number: US-BAXTER-2010BH003660

PATIENT
  Age: 71 Year
  Sex: Female

DRUGS (15)
  1. PRAVACHOL [Concomitant]
     Indication: PRODUCT USED FOR UNKNOWN INDICATION
     Route: 065
  2. HEPARIN SODIUM INJECTION [Suspect]
     Route: 042
     Dates: start: 20071105, end: 20071227
  3. COREG [Concomitant]
     Indication: PRODUCT USED FOR UNKNOWN INDICATION
     Route: 065
  4. DIGOXIN [Concomitant]
     Indication: PRODUCT USED FOR UNKNOWN INDICATION
     Route: 065
  5. HEPARIN SODIUM INJECTION [Suspect]
     Route: 042
     Dates: start: 20071001, end: 20071101
  6. HEPARIN SODIUM INJECTION [Suspect]
     Route: 040
     Dates: start: 20071121, end: 20071121
  7. BENICAR [Concomitant]
     Indication: PRODUCT USED FOR UNKNOWN INDICATION
     Route: 065
  8. LISINOPRIL [Concomitant]
     Indication: PRODUCT USED FOR UNKNOWN INDICATION
     Route: 065
  9. ZYLOPRIM [Concomitant]
     Indication: PRODUCT USED FOR UNKNOWN INDICATION
     Route: 065
  10. HEPARIN SODIUM INJECTION [Suspect]
     Route: 042
     Dates: start: 20071105, end: 20071227
  11. HEPARIN SODIUM 5,000 UNITS IN DEXTROSE 5% [Suspect]
     Indication: PRODUCT USED FOR UNKNOWN INDICATION
     Route: 042
     Dates: start: 20071121
  12. HEPARIN SODIUM INJECTION [Suspect]
     Indication: CORONARY ARTERY BYPASS
     Route: 042
     Dates: start: 20071105, end: 20071227
  13. HEPARIN SODIUM INJECTION [Suspect]
     Route: 042
     Dates: start: 20071114, end: 20071114
  14. HEPARIN SODIUM INJECTION [Suspect]
     Route: 042
     Dates: start: 20071105, end: 20071227
  15. LASIX [Concomitant]
     Indication: PRODUCT USED FOR UNKNOWN INDICATION
     Route: 065

REACTIONS (22)
  - RENAL FAILURE [None]
  - WHEEZING [None]
  - NAUSEA [None]
  - ASTHENIA [None]
  - CEREBROVASCULAR ACCIDENT [None]
  - HAEMORRHAGE [None]
  - CHEST DISCOMFORT [None]
  - RASH [None]
  - CARDIAC FAILURE CONGESTIVE [None]
  - HYPOTENSION [None]
  - HYPERHIDROSIS [None]
  - PLEURAL EFFUSION [None]
  - VOMITING [None]
  - HEPARIN-INDUCED THROMBOCYTOPENIA [None]
  - CHEST PAIN [None]
  - COAGULOPATHY [None]
  - CHILLS [None]
  - PYREXIA [None]
  - HYPERTENSIVE HEART DISEASE [None]
  - SHOCK [None]
  - ERYTHEMA [None]
  - VISION BLURRED [None]
